FAERS Safety Report 23837620 (Version 1)
Quarter: 2024Q2

REPORT INFORMATION
  Report Type: Spontaneous
  Country: US (occurrence: None)
  Receive Date: 20240508
  Receipt Date: 20240508
  Transmission Date: 20240716
  Serious: No
  Sender: FDA-Public Use
  Company Number: None

PATIENT
  Age: 68 Year
  Sex: Female
  Weight: 97.65 kg

DRUGS (1)
  1. NILOTINIB [Suspect]
     Active Substance: NILOTINIB
     Indication: Leukaemia
     Dosage: 150 MG TWICE A DAY ORAL?
     Route: 048
     Dates: start: 20230326

REACTIONS (4)
  - Dry skin [None]
  - Pruritus [None]
  - Asthenia [None]
  - Restless legs syndrome [None]

NARRATIVE: CASE EVENT DATE: 20240508
